FAERS Safety Report 7897023-7 (Version None)
Quarter: 2011Q4

REPORT INFORMATION
  Report Type: 
  Country: None (occurrence: None)
  Receive Date: 20111107
  Receipt Date: 20111101
  Transmission Date: 20120403
  Serious: No
  Sender: FDA-Public Use
  Company Number: US-PFIZER INC-2011268115

PATIENT
  Sex: Male
  Weight: 90.703 kg

DRUGS (6)
  1. SUTENT [Suspect]
     Dosage: 50 MG, 1X/DAY
     Route: 048
  2. VALSARTAN [Concomitant]
     Dosage: 40 MG, UNK
  3. ACETYLSALICYLIC ACID [Concomitant]
     Dosage: 81 MG, UNK
  4. METFORMIN [Concomitant]
     Dosage: 1000 MG, UNK
  5. CRESTOR [Concomitant]
     Dosage: 10 MG, UNK
  6. ACTOS [Concomitant]
     Dosage: 15 MG, UNK

REACTIONS (3)
  - FATIGUE [None]
  - DECREASED APPETITE [None]
  - CONTUSION [None]
